FAERS Safety Report 23434064 (Version 2)
Quarter: 2024Q1

REPORT INFORMATION
  Report Type: Spontaneous
  Country: FR (occurrence: FR)
  Receive Date: 20240123
  Receipt Date: 20240125
  Transmission Date: 20240410
  Serious: Yes (Hospitalization)
  Sender: FDA-Public Use
  Company Number: None

PATIENT
  Age: 80 Year
  Sex: Male
  Weight: 90 kg

DRUGS (10)
  1. CARBOPLATIN [Suspect]
     Active Substance: CARBOPLATIN
     Indication: Bronchial carcinoma
     Dosage: 580 MG; FREQ:4 WK
     Route: 042
     Dates: start: 20231025, end: 20231124
  2. PACLITAXEL [Suspect]
     Active Substance: PACLITAXEL
     Indication: Bronchial carcinoma
     Dosage: 165 MG, WEEKLY
     Route: 042
     Dates: start: 20231025, end: 20231130
  3. PEMBROLIZUMAB [Suspect]
     Active Substance: PEMBROLIZUMAB
     Indication: Bronchial carcinoma
     Dosage: 200 MG; FREQ:4 WK
     Route: 042
     Dates: start: 20220921, end: 20231006
  4. SILODOSIN [Concomitant]
     Active Substance: SILODOSIN
     Dosage: 6 MG, 1X/DAY
     Route: 048
  5. SPIRIVA [Concomitant]
     Active Substance: TIOTROPIUM BROMIDE MONOHYDRATE
     Dosage: 1 DF, 1X/DAY
     Route: 055
  6. ATORVASTATIN [Concomitant]
     Active Substance: ATORVASTATIN
     Dosage: 10 MG, 1X/DAY
     Route: 048
  7. LATANOPROST [Concomitant]
     Active Substance: LATANOPROST
     Dosage: 1 DROP, 1X/DAY
     Route: 047
  8. AVODART [Concomitant]
     Active Substance: DUTASTERIDE
     Dosage: 1 DF, 1X/DAY
     Route: 048
  9. ASPIRIN [Concomitant]
     Active Substance: ASPIRIN
     Dosage: 1 DF, 1X/DAY
     Route: 048
  10. INDACATEROL [Concomitant]
     Active Substance: INDACATEROL
     Dosage: 1 DF, 1X/DAY
     Route: 055

REACTIONS (3)
  - Meningitis aseptic [Recovering/Resolving]
  - Encephalitis [Recovering/Resolving]
  - Off label use [Unknown]

NARRATIVE: CASE EVENT DATE: 20231205
